FAERS Safety Report 5096682-4 (Version None)
Quarter: 2006Q3

REPORT INFORMATION
  Report Type: 
  Country: None (occurrence: None)
  Receive Date: 20060831
  Receipt Date: 20060815
  Transmission Date: 20061208
  Serious: Yes (Hospitalization)
  Sender: FDA-Public Use
  Company Number: GXKR2006ES04847

PATIENT
  Age: 85 Year
  Sex: Female

DRUGS (2)
  1. AMIODARONE (AMIODARONE) [Suspect]
     Indication: ATRIAL FIBRILLATION
  2. LEVOTHYROXINE SODIUM [Concomitant]

REACTIONS (12)
  - ASTHENIA [None]
  - CARDIAC FAILURE CONGESTIVE [None]
  - CARDIOMEGALY [None]
  - HYPOTHYROIDISM [None]
  - PERICARDIAL EFFUSION [None]
  - PLEURAL EFFUSION [None]
  - PULMONARY HYPERTENSION [None]
  - RENAL IMPAIRMENT [None]
  - RESPIRATORY FAILURE [None]
  - SEROSITIS [None]
  - SOMNOLENCE [None]
  - VENTRICULAR HYPERTROPHY [None]
